FAERS Safety Report 7811456-6 (Version None)
Quarter: 2011Q4

REPORT INFORMATION
  Report Type: 
  Country: None (occurrence: None)
  Receive Date: 20111013
  Receipt Date: 20111011
  Transmission Date: 20120403
  Serious: Yes (Other)
  Sender: FDA-Public Use
  Company Number: AU-PFIZER INC-2011242903

PATIENT
  Age: 71 Year
  Sex: Male

DRUGS (2)
  1. ZIPRASIDONE HYDROCHLORIDE [Suspect]
     Dosage: 120 MG PER DAY
  2. ZIPRASIDONE HYDROCHLORIDE [Suspect]
     Indication: SCHIZOPHRENIA
     Dosage: UNK

REACTIONS (6)
  - MUSCULOSKELETAL STIFFNESS [None]
  - SLEEP DISORDER [None]
  - DYSKINESIA [None]
  - DIZZINESS [None]
  - ASTHENIA [None]
  - PALPITATIONS [None]
